FAERS Safety Report 19175937 (Version 1)
Quarter: 2021Q2

REPORT INFORMATION
  Report Type: Spontaneous
  Country: US (occurrence: US)
  Receive Date: 20210423
  Receipt Date: 20210423
  Transmission Date: 20210717
  Serious: Yes (Other)
  Sender: FDA-Public Use
  Company Number: US-GLAXOSMITHKLINE-US2021GSK091459

PATIENT
  Sex: Female

DRUGS (20)
  1. ZANTAC [Suspect]
     Active Substance: RANITIDINE HYDROCHLORIDE
     Dosage: 300 MG, QD
     Route: 065
     Dates: start: 201301, end: 201901
  2. RANITIDINE. [Suspect]
     Active Substance: RANITIDINE
     Indication: GASTROOESOPHAGEAL REFLUX DISEASE
     Dosage: 150  MG BOTH
     Route: 065
     Dates: start: 201301, end: 201901
  3. ZANTAC [Suspect]
     Active Substance: RANITIDINE HYDROCHLORIDE
     Indication: GASTROOESOPHAGEAL REFLUX DISEASE
     Dosage: 75 MG BOTH
     Route: 065
     Dates: start: 201301, end: 201901
  4. ZANTAC [Suspect]
     Active Substance: RANITIDINE HYDROCHLORIDE
     Indication: GASTROOESOPHAGEAL REFLUX DISEASE
     Dosage: 75 MG BOTH
     Route: 065
     Dates: start: 201301, end: 201901
  5. RANITIDINE. [Suspect]
     Active Substance: RANITIDINE
     Indication: GASTROOESOPHAGEAL REFLUX DISEASE
     Dosage: 75 MG  BOTH
     Route: 065
     Dates: start: 201301, end: 201901
  6. RANITIDINE. [Suspect]
     Active Substance: RANITIDINE
     Dosage: 150  MG BOTH
     Route: 065
     Dates: start: 201301, end: 201901
  7. RANITIDINE HYDROCHLORIDE. [Suspect]
     Active Substance: RANITIDINE HYDROCHLORIDE
     Indication: GASTROOESOPHAGEAL REFLUX DISEASE
     Dosage: 75 MG, QD
     Route: 065
     Dates: start: 201301, end: 201901
  8. RANITIDINE CAPSULE [Suspect]
     Active Substance: RANITIDINE
     Dosage: 300 MG BOTH
     Route: 065
     Dates: start: 201301, end: 201901
  9. RANITIDINE. [Suspect]
     Active Substance: RANITIDINE
     Dosage: 300 MG, QD
     Route: 065
     Dates: start: 201301, end: 201901
  10. ZANTAC [Suspect]
     Active Substance: RANITIDINE HYDROCHLORIDE
     Dosage: 150 MG BOTH
     Route: 065
     Dates: start: 201301, end: 201901
  11. RANITIDINE CAPSULE [Suspect]
     Active Substance: RANITIDINE
     Indication: GASTROOESOPHAGEAL REFLUX DISEASE
     Dosage: 150  MG BOTH
     Route: 065
     Dates: start: 201301, end: 201901
  12. RANITIDINE. [Suspect]
     Active Substance: RANITIDINE
     Indication: GASTROOESOPHAGEAL REFLUX DISEASE
     Dosage: 75 MG  BOTH
     Route: 065
     Dates: start: 201301, end: 201901
  13. ZANTAC [Suspect]
     Active Substance: RANITIDINE HYDROCHLORIDE
     Dosage: 300 MG, QD
     Route: 065
     Dates: start: 201301, end: 201901
  14. RANITIDINE. [Suspect]
     Active Substance: RANITIDINE
     Dosage: 150  MG BOTH
     Route: 065
     Dates: start: 201301, end: 201901
  15. RANITIDINE. [Suspect]
     Active Substance: RANITIDINE
     Dosage: 300 MG, QD
     Route: 065
     Dates: start: 201301, end: 201901
  16. RANITIDINE HYDROCHLORIDE. [Suspect]
     Active Substance: RANITIDINE HYDROCHLORIDE
     Dosage: UNK
  17. ZANTAC [Suspect]
     Active Substance: RANITIDINE HYDROCHLORIDE
     Dosage: 150 MG BOTH
     Route: 065
     Dates: start: 201301, end: 201901
  18. RANITIDINE CAPSULE [Suspect]
     Active Substance: RANITIDINE
     Dosage: 75 MG  BOTH
     Route: 065
     Dates: start: 201301, end: 201901
  19. RANITIDINE. [Suspect]
     Active Substance: RANITIDINE
     Dosage: 300 MG, QD
     Route: 065
     Dates: start: 201301, end: 201901
  20. RANITIDINE HYDROCHLORIDE. [Suspect]
     Active Substance: RANITIDINE HYDROCHLORIDE
     Dosage: UNK

REACTIONS (1)
  - Breast cancer [Unknown]
